FAERS Safety Report 15759164 (Version 1)
Quarter: 2018Q4

REPORT INFORMATION
  Report Type: Report from Study
  Country: US (occurrence: US)
  Receive Date: 20181226
  Receipt Date: 20181226
  Transmission Date: 20190205
  Serious: Yes (Hospitalization)
  Sender: FDA-Public Use
  Company Number: US-BRISTOL-MYERS SQUIBB COMPANY-BMS-2018-120207

PATIENT
  Age: 61 Year
  Sex: Female

DRUGS (2)
  1. IPILIMUMAB [Suspect]
     Active Substance: IPILIMUMAB
     Indication: METASTATIC MALIGNANT MELANOMA
     Dosage: 120 MG, UNK
     Route: 042
     Dates: start: 20181112
  2. NIVOLUMAB [Suspect]
     Active Substance: NIVOLUMAB
     Indication: METASTATIC MALIGNANT MELANOMA
     Dosage: 350 MG, UNK
     Route: 042
     Dates: start: 20181112

REACTIONS (4)
  - Fatigue [Unknown]
  - Troponin I increased [Unknown]
  - Agitation [Unknown]
  - Myalgia [Unknown]

NARRATIVE: CASE EVENT DATE: 20181213
